FAERS Safety Report 22144905 (Version 1)
Quarter: 2023Q1

REPORT INFORMATION
  Report Type: Spontaneous
  Country: ES (occurrence: ES)
  Receive Date: 20230328
  Receipt Date: 20230328
  Transmission Date: 20230418
  Serious: Yes (Hospitalization, Other)
  Sender: FDA-Public Use
  Company Number: ES-AEMPS-1339779

PATIENT
  Age: 27 Year
  Sex: Female

DRUGS (1)
  1. ACETAMINOPHEN [Suspect]
     Active Substance: ACETAMINOPHEN
     Indication: Suicidal ideation
     Dosage: 40 GRAM(SINGLE DOSE 40 TABLETS (40 GRAMS) + ALCOHOL)
     Route: 048
     Dates: start: 20230226, end: 20230226

REACTIONS (2)
  - Depressed level of consciousness [Recovered/Resolved]
  - Intentional overdose [Recovered/Resolved]

NARRATIVE: CASE EVENT DATE: 20230226
